FAERS Safety Report 14984427 (Version 1)
Quarter: 2018Q2

REPORT INFORMATION
  Report Type: Spontaneous
  Country: US (occurrence: US)
  Receive Date: 20180607
  Receipt Date: 20180607
  Transmission Date: 20180711
  Serious: No
  Sender: FDA-Public Use
  Company Number: US-LPDUSPRD-20180011

PATIENT
  Sex: Male

DRUGS (1)
  1. CYANOCOBALAMIN INJECTION, USP (0032-25) [Suspect]
     Active Substance: CYANOCOBALAMIN
     Dosage: UNKNOWN
     Route: 065
     Dates: start: 20171221, end: 20171228

REACTIONS (4)
  - Myalgia [Recovering/Resolving]
  - Fatigue [Recovering/Resolving]
  - Pyrexia [Recovering/Resolving]
  - Tonsillitis [Recovering/Resolving]

NARRATIVE: CASE EVENT DATE: 20171231
